FAERS Safety Report 25199049 (Version 2)
Quarter: 2025Q3

REPORT INFORMATION
  Report Type: Report from Study
  Country: US (occurrence: US)
  Receive Date: 20250415
  Receipt Date: 20250809
  Transmission Date: 20251021
  Serious: Yes (Other)
  Sender: ALEXION PHARMACEUTICALS
  Company Number: US-AstraZeneca-CH-00845747A

PATIENT
  Sex: Female
  Weight: 125.5 kg

DRUGS (2)
  1. CAPIVASERTIB [Suspect]
     Active Substance: CAPIVASERTIB
     Indication: Breast cancer female
     Dosage: 200 MILLIGRAM, BID
     Dates: start: 20240424
  2. CAPIVASERTIB [Suspect]
     Active Substance: CAPIVASERTIB
     Indication: Metastases to breast

REACTIONS (5)
  - Pleural effusion [Unknown]
  - Back pain [Unknown]
  - Depression [Unknown]
  - Arthritis [Unknown]
  - Lung adenocarcinoma [Unknown]
